FAERS Safety Report 8123611-9 (Version None)
Quarter: 2012Q1

REPORT INFORMATION
  Report Type: 
  Country: None (occurrence: None)
  Receive Date: 20120208
  Receipt Date: 20120203
  Transmission Date: 20120608
  Serious: Yes (Hospitalization)
  Sender: FDA-Public Use
  Company Number: PHEH2012US000913

PATIENT
  Sex: Male

DRUGS (13)
  1. SANDOSTATIN LAR [Concomitant]
     Dosage: 20 MG
  2. COREG [Concomitant]
     Dosage: UNK
  3. HYDROCHLOROTHIAZIDE [Concomitant]
     Dosage: UNK
  4. LOMOTIL [Suspect]
     Dosage: UNK
  5. SIMVASTATIN [Concomitant]
     Dosage: UNK
  6. ASCORBIC ACID [Concomitant]
     Dosage: UNK
  7. NORVASC [Concomitant]
     Dosage: UNK
  8. LISINOPRIL [Concomitant]
     Dosage: UNK
  9. NEXIUM [Concomitant]
     Dosage: UNK
  10. AFINITOR [Suspect]
     Dosage: 10 MG, QD
     Route: 048
     Dates: start: 20111214
  11. LISINOPRIL AND HYDROCHLOROTHIAZIDE [Concomitant]
     Dosage: UNK
  12. WARFARIN SODIUM [Concomitant]
     Dosage: UNK
  13. CLONIDINE [Concomitant]
     Dosage: UNK

REACTIONS (4)
  - CONVULSION [None]
  - PYREXIA [None]
  - CYST [None]
  - INFECTION [None]
